FAERS Safety Report 13780330 (Version 1)
Quarter: 2017Q3

REPORT INFORMATION
  Report Type: Spontaneous
  Country: US (occurrence: US)
  Receive Date: 20170724
  Receipt Date: 20170724
  Transmission Date: 20171127
  Serious: No
  Sender: FDA-Public Use
  Company Number: US-SHIRE-US201714806

PATIENT

DRUGS (1)
  1. XIIDRA [Suspect]
     Active Substance: LIFITEGRAST
     Indication: PRODUCT USED FOR UNKNOWN INDICATION
     Dosage: UNK
     Route: 047

REACTIONS (7)
  - Drug dose omission [Unknown]
  - Instillation site pruritus [Unknown]
  - Liquid product physical issue [Unknown]
  - Instillation site pain [Unknown]
  - Ocular hyperaemia [Unknown]
  - Tremor [Unknown]
  - Product physical issue [Unknown]
